FAERS Safety Report 8231169-9 (Version None)
Quarter: 2012Q1

REPORT INFORMATION
  Report Type: 
  Country: None (occurrence: None)
  Receive Date: 20120323
  Receipt Date: 20120323
  Transmission Date: 20120608
  Serious: Yes (Hospitalization)
  Sender: FDA-Public Use
  Company Number: None

PATIENT
  Sex: Male
  Weight: 20.2 kg

DRUGS (10)
  1. FLUDARABINE PHOSPHATE [Suspect]
  2. LANSOPRAZOLE [Concomitant]
  3. HYDROXYZINE [Concomitant]
  4. ACYCLOVIR [Concomitant]
  5. ONDANSETRON [Concomitant]
  6. URSODIO [Concomitant]
  7. FLUCONAZOLE [Concomitant]
  8. ENALAPRIL [Concomitant]
  9. HEPARIN [Concomitant]
  10. IMMUNE GLOBULIN INTRAVENOUS (HUMAN) [Concomitant]
     Route: 042

REACTIONS (1)
  - HYPERTRIGLYCERIDAEMIA [None]
